FAERS Safety Report 24084128 (Version 3)
Quarter: 2024Q3

REPORT INFORMATION
  Report Type: Spontaneous
  Country: US (occurrence: US)
  Receive Date: 20240712
  Receipt Date: 20240829
  Transmission Date: 20241017
  Serious: Yes (Other)
  Sender: PFIZER
  Company Number: US-PFIZER INC-202400212738

PATIENT
  Age: 21 Year
  Sex: Male
  Weight: 84.354 kg

DRUGS (1)
  1. XELJANZ [Suspect]
     Active Substance: TOFACITINIB CITRATE
     Indication: Colitis ulcerative
     Dosage: 5 MG
     Route: 048
     Dates: start: 20240505

REACTIONS (3)
  - Coeliac disease [Unknown]
  - Thyroid disorder [Unknown]
  - Dysphonia [Recovered/Resolved]
